FAERS Safety Report 13076097 (Version 3)
Quarter: 2017Q1

REPORT INFORMATION
  Report Type: Spontaneous
  Country: US (occurrence: US)
  Receive Date: 20161230
  Receipt Date: 20170303
  Transmission Date: 20170428
  Serious: Yes (Other)
  Sender: FDA-Public Use
  Company Number: PHEH2016US033883

PATIENT
  Age: 5 Year
  Sex: Female
  Weight: 23 kg

DRUGS (1)
  1. ILARIS [Suspect]
     Active Substance: CANAKINUMAB
     Indication: JUVENILE IDIOPATHIC ARTHRITIS
     Dosage: 100 MG, EVERY 4 WEEKS
     Route: 058
     Dates: start: 20161223, end: 20170118

REACTIONS (5)
  - Juvenile idiopathic arthritis [Unknown]
  - Pyrexia [Unknown]
  - Cough [Unknown]
  - Fatigue [Unknown]
  - Pneumonia [Unknown]

NARRATIVE: CASE EVENT DATE: 20161226
